FAERS Safety Report 4988051-X (Version None)
Quarter: 2006Q2

REPORT INFORMATION
  Report Type: 
  Country: None (occurrence: None)
  Receive Date: 20060424
  Receipt Date: 20060406
  Transmission Date: 20061013
  Serious: Yes (Other)
  Sender: FDA-Public Use
  Company Number: 2006BH007520

PATIENT
  Sex: Male
  Weight: 1470 kg

DRUGS (3)
  1. AMPICILLIN [Suspect]
     Indication: MORGANELLA INFECTION
  2. CEFOTAXIME [Concomitant]
  3. AMIKACIN [Concomitant]

REACTIONS (3)
  - DRUG EXPOSURE DURING PREGNANCY [None]
  - MORGANELLA INFECTION [None]
  - SEPSIS NEONATAL [None]
